FAERS Safety Report 6805213-7 (Version None)
Quarter: 2010Q2

REPORT INFORMATION
  Report Type: 
  Country: None (occurrence: None)
  Receive Date: 20100628
  Receipt Date: 20071009
  Transmission Date: 20101027
  Serious: Yes (Other)
  Sender: FDA-Public Use
  Company Number: US-PFIZER INC-2007075696

PATIENT
  Age: 35 Year
  Sex: Female
  Weight: 56.2 kg

DRUGS (1)
  1. GEODON [Suspect]
     Indication: BIPOLAR DISORDER
     Dosage: DAILY: EVERYDAY
     Dates: start: 20070801, end: 20070101

REACTIONS (1)
  - EXTRAPYRAMIDAL DISORDER [None]
